FAERS Safety Report 21936204 (Version 1)
Quarter: 2023Q1

REPORT INFORMATION
  Report Type: Spontaneous
  Country: FI (occurrence: FI)
  Receive Date: 20230201
  Receipt Date: 20230201
  Transmission Date: 20230417
  Serious: Yes (Other)
  Sender: FDA-Public Use
  Company Number: None

PATIENT
  Age: 14 Year
  Sex: Female

DRUGS (3)
  1. ARIPIPRAZOLE [Suspect]
     Active Substance: ARIPIPRAZOLE
     Indication: Mental disorder
     Dosage: 2.5 MILLIGRAM, QD, 2.5,MG,DAILY
     Route: 048
     Dates: start: 20221228
  2. SERTRALINE [Suspect]
     Active Substance: SERTRALINE HYDROCHLORIDE
     Indication: Mental disorder
     Dosage: 25 MILLIGRAM, QD, 25,MG,DAILY
     Route: 048
     Dates: start: 20221228
  3. ATARAX [Concomitant]
     Active Substance: HYDROXYZINE HYDROCHLORIDE
     Indication: Pruritus
     Dosage: UNK
     Route: 048
     Dates: start: 2015

REACTIONS (5)
  - Mental impairment [Recovered/Resolved]
  - Syncope [Recovered/Resolved]
  - Limb discomfort [Recovered/Resolved]
  - Visual impairment [Recovered/Resolved]
  - Feeling hot [Recovered/Resolved]

NARRATIVE: CASE EVENT DATE: 20221228
